FAERS Safety Report 8803089 (Version 3)
Quarter: 2013Q1

REPORT INFORMATION
  Report Type: Spontaneous
  Country: BR (occurrence: BR)
  Receive Date: 20120924
  Receipt Date: 20130129
  Transmission Date: 20140127
  Serious: Yes (Death)
  Sender: FDA-Public Use
  Company Number: BR-NOVOPROD-360130

PATIENT
  Age: 70 Year
  Sex: Female

DRUGS (1)
  1. NOVOLIN N [Suspect]
     Indication: TYPE 2 DIABETES MELLITUS

REACTIONS (4)
  - Incorrect route of drug administration [Fatal]
  - Cardiac arrest [Fatal]
  - Diabetic ketoacidosis [Fatal]
  - Vision blurred [Recovering/Resolving]
